FAERS Safety Report 15435898 (Version 1)
Quarter: 2018Q3

REPORT INFORMATION
  Report Type: Spontaneous
  Country: IT (occurrence: IT)
  Receive Date: 20180927
  Receipt Date: 20180927
  Transmission Date: 20181010
  Serious: Yes (Other)
  Sender: FDA-Public Use
  Company Number: PHHY2016IT149375

PATIENT
  Age: 16 Year
  Sex: Male

DRUGS (8)
  1. L DOPA [Concomitant]
     Active Substance: LEVODOPA
     Indication: TETRAHYDROBIOPTERIN DEFICIENCY
     Dosage: 6.4 MG/KG, UNK
     Route: 065
  2. 5?HYDROXYTRYPTOPHAN [Concomitant]
     Active Substance: OXITRIPTAN
     Indication: TETRAHYDROBIOPTERIN DEFICIENCY
     Dosage: 4.8 MG/KG, UNK
     Route: 065
  3. PRAMIPEXOLE. [Suspect]
     Active Substance: PRAMIPEXOLE
     Dosage: 0.006 MG/KG, QD
     Route: 065
  4. CARBIDOPA. [Concomitant]
     Active Substance: CARBIDOPA
     Indication: TETRAHYDROBIOPTERIN DEFICIENCY
     Dosage: 1.6 MG/KG, UNK
     Route: 065
  5. PRAMIPEXOLE. [Suspect]
     Active Substance: PRAMIPEXOLE
     Indication: TETRAHYDROBIOPTERIN DEFICIENCY
     Dosage: 0.32 MG/KG, QD
     Route: 065
  6. PRAMIPEXOLE. [Suspect]
     Active Substance: PRAMIPEXOLE
     Dosage: 0.03 MG/KG, UNK
     Route: 065
  7. ENTACAPONE. [Concomitant]
     Active Substance: ENTACAPONE
     Indication: TETRAHYDROBIOPTERIN DEFICIENCY
     Dosage: 7.7 MG/KG, UNK
     Route: 065
  8. SELEGILINE [Concomitant]
     Active Substance: SELEGILINE
     Indication: TETRAHYDROBIOPTERIN DEFICIENCY
     Dosage: 0.13 MG/KG, UNK
     Route: 065

REACTIONS (4)
  - Hypersexuality [Recovered/Resolved]
  - Impulse-control disorder [Recovered/Resolved]
  - Aggression [Recovered/Resolved]
  - Initial insomnia [Recovered/Resolved]
